FAERS Safety Report 5191033-9 (Version None)
Quarter: 2006Q4

REPORT INFORMATION
  Report Type: 
  Country: None (occurrence: None)
  Receive Date: 20061218
  Receipt Date: 20061207
  Transmission Date: 20070319
  Serious: No
  Sender: FDA-Public Use
  Company Number: 2006SP000017

PATIENT

DRUGS (1)
  1. PEGINTERFERON ALFA-2B W/RIBAVIRIN (S-P) (PEGYLATED INTERFERON ALFA-2B [Suspect]

REACTIONS (1)
  - OPTIC ISCHAEMIC NEUROPATHY [None]
